FAERS Safety Report 4968928-1 (Version None)
Quarter: 2006Q2

REPORT INFORMATION
  Report Type: 
  Country: None (occurrence: None)
  Receive Date: 20060411
  Receipt Date: 20050929
  Transmission Date: 20061013
  Serious: Yes (Hospitalization)
  Sender: FDA-Public Use
  Company Number: US-MERCK-0510USA00354

PATIENT
  Age: 52 Year
  Sex: Female
  Weight: 100 kg

DRUGS (18)
  1. VIOXX [Suspect]
     Indication: ARTHRITIS
     Route: 048
     Dates: start: 20000101, end: 20011010
  2. VIOXX [Suspect]
     Indication: PAIN
     Route: 048
     Dates: start: 20000101, end: 20011010
  3. LOTREL [Concomitant]
     Route: 065
  4. IBUPROFEN [Concomitant]
     Route: 065
  5. BACLOFEN [Concomitant]
     Route: 065
  6. PEPCID [Concomitant]
     Route: 065
  7. TRIMOX [Concomitant]
     Route: 065
  8. TUSSIN PE [Concomitant]
     Route: 065
  9. CELEBREX [Concomitant]
     Route: 065
  10. PREVACID [Concomitant]
     Route: 065
  11. NORVASC [Concomitant]
     Route: 065
  12. GLUCOPHAGE [Concomitant]
     Route: 065
  13. AMARYL [Concomitant]
     Route: 065
  14. ATENOLOL [Concomitant]
     Route: 065
  15. DIOVAN [Concomitant]
     Route: 065
  16. DOCUSATE CALCIUM [Concomitant]
     Route: 065
  17. LOTENSIN [Concomitant]
     Route: 065
  18. COREG [Concomitant]
     Route: 065

REACTIONS (13)
  - ABDOMINAL PAIN [None]
  - ADVERSE EVENT [None]
  - ATELECTASIS [None]
  - CARDIAC FAILURE CHRONIC [None]
  - CARDIOMEGALY [None]
  - CHEST PAIN [None]
  - CORONARY ARTERY DISEASE [None]
  - DIABETES MELLITUS NON-INSULIN-DEPENDENT [None]
  - DYSPNOEA [None]
  - HERNIA [None]
  - HYPERLIPIDAEMIA [None]
  - HYPERTENSION [None]
  - MYOCARDIAL INFARCTION [None]
